FAERS Safety Report 8268044-X (Version None)
Quarter: 2012Q2

REPORT INFORMATION
  Report Type: 
  Country: None (occurrence: None)
  Receive Date: 20120404
  Receipt Date: 20120323
  Transmission Date: 20120825
  Serious: Yes (Hospitalization)
  Sender: FDA-Public Use
  Company Number: ACO_28151_2011

PATIENT
  Age: 36 Year
  Sex: Male

DRUGS (3)
  1. FAMPYRA (DALFAMPRIDINE) TABLET, 10MG [Suspect]
     Indication: MULTIPLE SCLEROSIS
     Dosage: 10 MG, BID, ORAL
     Route: 048
     Dates: start: 20111103, end: 20120101
  2. TYSABRI [Concomitant]
  3. LACTULOSE [Concomitant]

REACTIONS (10)
  - NASOPHARYNGITIS [None]
  - LIMB INJURY [None]
  - SINUSITIS [None]
  - SLEEP DISORDER [None]
  - MULTIPLE SCLEROSIS [None]
  - MUCOSAL INFLAMMATION [None]
  - HYPERHIDROSIS [None]
  - CONSTIPATION [None]
  - GAIT DISTURBANCE [None]
  - FALL [None]
